FAERS Safety Report 7383065-7 (Version None)
Quarter: 2011Q1

REPORT INFORMATION
  Report Type: 
  Country: None (occurrence: None)
  Receive Date: 20110330
  Receipt Date: 20110324
  Transmission Date: 20110831
  Serious: No
  Sender: FDA-Public Use
  Company Number: US-PFIZER INC-2011066347

PATIENT
  Sex: Male
  Weight: 56.689 kg

DRUGS (2)
  1. ADVIL PM [Suspect]
     Indication: SLEEP DISORDER
  2. ADVIL PM [Suspect]
     Indication: PAIN
     Dosage: 1 TABLET AT BEDTIME
     Route: 048
     Dates: start: 20110301

REACTIONS (1)
  - WEIGHT INCREASED [None]
